FAERS Safety Report 10613920 (Version 3)
Quarter: 2015Q1

REPORT INFORMATION
  Report Type: Report from Study
  Country: DE (occurrence: NL)
  Receive Date: 20141128
  Receipt Date: 20150212
  Transmission Date: 20150720
  Serious: Yes (Death, Disabling)
  Sender: FDA-Public Use
  Company Number: DE-ACTELION-A-NJ2014-108901

PATIENT
  Age: 82 Year
  Sex: Female

DRUGS (5)
  1. RYTMONORM [Concomitant]
     Active Substance: PROPAFENONE
  2. PANTOZOL [Concomitant]
     Active Substance: PANTOPRAZOLE SODIUM
  3. ASPIRINE [Concomitant]
     Active Substance: ASPIRIN
  4. VENTAVIS [Suspect]
     Active Substance: ILOPROST
     Indication: PULMONARY ARTERIAL HYPERTENSION
     Dosage: 5 MCG, X6
     Route: 055
     Dates: start: 20140923
  5. OPSUMIT [Concomitant]
     Active Substance: MACITENTAN

REACTIONS (3)
  - Pulmonary arterial hypertension [Fatal]
  - Diarrhoea [Recovering/Resolving]
  - Abdominal pain [Recovering/Resolving]

NARRATIVE: CASE EVENT DATE: 20141021
